FAERS Safety Report 10827782 (Version 1)
Quarter: 2015Q1

REPORT INFORMATION
  Report Type: Report from Study
  Country: US (occurrence: US)
  Receive Date: 20150219
  Receipt Date: 20150219
  Transmission Date: 20150721
  Serious: Yes (Other)
  Sender: FDA-Public Use
  Company Number: US-ABBVIE-14K-163-1325774-00

PATIENT
  Age: 44 Year
  Sex: Male
  Weight: 102.15 kg

DRUGS (3)
  1. ZANTAC [Concomitant]
     Active Substance: RANITIDINE HYDROCHLORIDE
     Indication: DYSPEPSIA
  2. HUMIRA [Suspect]
     Active Substance: ADALIMUMAB
     Indication: PSORIASIS
     Route: 065
     Dates: start: 20141014, end: 20141014
  3. HUMIRA [Suspect]
     Active Substance: ADALIMUMAB
     Route: 065
     Dates: start: 20141021

REACTIONS (7)
  - Dizziness [Recovered/Resolved]
  - Blood sodium decreased [Unknown]
  - Fatigue [Recovered/Resolved]
  - White blood cell count increased [Unknown]
  - Nausea [Recovered/Resolved]
  - Lobar pneumonia [Recovered/Resolved]
  - Asthenia [Recovered/Resolved]

NARRATIVE: CASE EVENT DATE: 201412
